FAERS Safety Report 6528620-9 (Version None)
Quarter: 2009Q4

REPORT INFORMATION
  Report Type: 
  Country: None (occurrence: None)
  Receive Date: 20091224
  Receipt Date: 20091223
  Transmission Date: 20100525
  Serious: Yes (Hospitalization)
  Sender: FDA-Public Use
  Company Number: 2009SP043001

PATIENT
  Age: 89 Year
  Sex: Male

DRUGS (4)
  1. DESLORATADINE [Suspect]
     Indication: PRURITUS
     Dosage: 5 MG; QD; PO
     Route: 048
     Dates: start: 20081201, end: 20090102
  2. PREVISCAN (FLUINDIONE) [Suspect]
     Indication: ARRHYTHMIA
     Dosage: 5 MG; QD; PO
     Route: 048
     Dates: end: 20090101
  3. ACETAMINOPHEN [Suspect]
     Indication: PAIN
     Dosage: 1000 MG; TID; PO
     Route: 048
     Dates: end: 20090102
  4. FOZITEC [Concomitant]

REACTIONS (4)
  - HAEMOPTYSIS [None]
  - INTERNATIONAL NORMALISED RATIO INCREASED [None]
  - METASTASES TO LUNG [None]
  - PRURITUS [None]
